FAERS Safety Report 8476740-4 (Version None)
Quarter: 2012Q2

REPORT INFORMATION
  Report Type: 
  Country: None (occurrence: None)
  Receive Date: 20120628
  Receipt Date: 20120620
  Transmission Date: 20120825
  Serious: Yes (Other)
  Sender: FDA-Public Use
  Company Number: US-RB-041697-12

PATIENT
  Age: 31 Year
  Sex: Female

DRUGS (3)
  1. SUBUTEX [Suspect]
     Indication: DRUG DEPENDENCE
     Dosage: 4-20MG THROUGHOUT THE PREGNANCY
     Route: 060
     Dates: start: 20080901, end: 20090527
  2. MULTI-VITAMINS [Concomitant]
     Indication: PREGNANCY
     Dosage: DOSAGE DETAILS UNKNOWN
     Route: 065
  3. SUBOXONE [Suspect]
     Indication: DRUG DEPENDENCE
     Dosage: 16-24MG DAILY
     Route: 060
     Dates: start: 20061201, end: 20080901

REACTIONS (7)
  - PRE-ECLAMPSIA [None]
  - MATERNAL EXPOSURE DURING PREGNANCY [None]
  - WRONG TECHNIQUE IN DRUG USAGE PROCESS [None]
  - HYPERTENSION [None]
  - NAUSEA [None]
  - OEDEMA PERIPHERAL [None]
  - CONSTIPATION [None]
